FAERS Safety Report 7451989-8 (Version None)
Quarter: 2011Q2

REPORT INFORMATION
  Report Type: 
  Country: None (occurrence: None)
  Receive Date: 20110502
  Receipt Date: 20110421
  Transmission Date: 20111010
  Serious: Yes (Hospitalization, Other)
  Sender: FDA-Public Use
  Company Number: FR-BRISTOL-MYERS SQUIBB COMPANY-15692130

PATIENT
  Age: 49 Year
  Sex: Male

DRUGS (7)
  1. ACETAMINOPHEN [Suspect]
     Route: 048
     Dates: start: 20110225, end: 20110303
  2. NORVIR [Interacting]
     Indication: RETROVIRAL INFECTION
     Route: 048
     Dates: start: 20101218, end: 20110303
  3. EFFEXOR [Interacting]
     Indication: RETROVIRAL INFECTION
     Route: 048
     Dates: start: 20110225
  4. REYATAZ [Interacting]
     Indication: RETROVIRAL INFECTION
     Route: 048
     Dates: start: 20101218, end: 20110303
  5. IMODIUM [Suspect]
     Route: 048
     Dates: start: 20110225, end: 20110303
  6. TRUVADA [Suspect]
     Indication: RETROVIRAL INFECTION
     Route: 048
     Dates: start: 20070101, end: 20110303
  7. KALETRA [Concomitant]
     Indication: RETROVIRAL INFECTION
     Dates: start: 20101201

REACTIONS (9)
  - VOMITING [None]
  - HYPERBILIRUBINAEMIA [None]
  - ABDOMINAL PAIN [None]
  - DIARRHOEA [None]
  - NAUSEA [None]
  - CHILLS [None]
  - DRUG INTERACTION [None]
  - AFFECTIVE DISORDER [None]
  - CONDITION AGGRAVATED [None]
